APPROVED DRUG PRODUCT: ZYPREXA ZYDIS
Active Ingredient: OLANZAPINE
Strength: 10MG
Dosage Form/Route: TABLET, ORALLY DISINTEGRATING;ORAL
Application: N021086 | Product #002 | TE Code: AB
Applicant: CHEPLAPHARM REGISTRATION GMBH
Approved: Apr 6, 2000 | RLD: Yes | RS: No | Type: RX